FAERS Safety Report 9047333 (Version 1)
Quarter: 2013Q1

REPORT INFORMATION
  Report Type: Report from Study
  Country: US (occurrence: US)
  Receive Date: 20130131
  Receipt Date: 20130131
  Transmission Date: 20140127
  Serious: No
  Sender: FDA-Public Use
  Company Number: US-ABBOTT-12P-163-0972990-00

PATIENT
  Age: 68 Year
  Sex: Female

DRUGS (10)
  1. HUMIRA [Suspect]
     Indication: CROHN^S DISEASE
     Route: 058
     Dates: start: 20120716, end: 20120716
  2. HUMIRA [Suspect]
     Dates: start: 20120730, end: 20120730
  3. HUMIRA [Suspect]
  4. HUMIRA [Suspect]
     Route: 058
  5. LIALDA [Concomitant]
     Indication: CROHN^S DISEASE
  6. AZATHIOPRINE [Concomitant]
     Indication: CROHN^S DISEASE
  7. TRIAMTERENE AND HYDROCHLOROTHIAZID [Concomitant]
     Indication: HYPERTENSION
     Dosage: 37.5/25MG DAILY
  8. VERAPAMIL [Concomitant]
     Indication: HYPERTENSION
     Dosage: 240MG DAILY
  9. BAYER ASPIRIN [Concomitant]
     Indication: PROPHYLAXIS
     Dosage: DAILY
  10. INSULIN [Concomitant]
     Indication: DIABETES MELLITUS

REACTIONS (3)
  - Drug dose omission [Unknown]
  - Rash [Recovered/Resolved]
  - Tooth infection [Recovered/Resolved]
